FAERS Safety Report 7386695-1 (Version None)
Quarter: 2011Q1

REPORT INFORMATION
  Report Type: 
  Country: None (occurrence: None)
  Receive Date: 20110331
  Receipt Date: 20110322
  Transmission Date: 20110831
  Serious: Yes (Death, Hospitalization)
  Sender: FDA-Public Use
  Company Number: DE-JNJFOC-20110107368

PATIENT
  Sex: Male
  Weight: 76 kg

DRUGS (7)
  1. RAMIPRIL [Concomitant]
  2. METOPROLOL [Concomitant]
  3. PALEXIA RETARD [Suspect]
     Indication: PAIN
     Route: 048
  4. THIAMAZOL [Concomitant]
     Indication: HYPERTHYROIDISM
  5. SPIRONOLACTONE [Concomitant]
  6. TORASEMID [Concomitant]
     Indication: CORONARY ARTERY DISEASE
  7. CRATAEGUTT NOVO [Concomitant]

REACTIONS (6)
  - CARDIAC ARREST [None]
  - MEGACOLON [None]
  - MECHANICAL ILEUS [None]
  - VOMITING [None]
  - GASTROINTESTINAL MOTILITY DISORDER [None]
  - NAUSEA [None]
